FAERS Safety Report 6075317-8 (Version None)
Quarter: 2009Q1

REPORT INFORMATION
  Report Type: 
  Country: None (occurrence: None)
  Receive Date: 20090212
  Receipt Date: 20090202
  Transmission Date: 20090719
  Serious: Yes (Hospitalization)
  Sender: FDA-Public Use
  Company Number: US-NOVOPROD-283749

PATIENT
  Age: 59 Year
  Sex: Female

DRUGS (1)
  1. NOVOLOG [Suspect]
     Indication: TYPE 1 DIABETES MELLITUS
     Dosage: SLIDING SCALE
     Route: 058

REACTIONS (3)
  - BLOOD GLUCOSE INCREASED [None]
  - DEVICE FAILURE [None]
  - MENTAL STATUS CHANGES [None]
